FAERS Safety Report 9790844 (Version 2)
Quarter: 2014Q2

REPORT INFORMATION
  Report Type: Report from Study
  Country: MX (occurrence: MX)
  Receive Date: 20131231
  Receipt Date: 20140626
  Transmission Date: 20141212
  Serious: No
  Sender: FDA-Public Use
  Company Number: PHHY2013MX153977

PATIENT
  Age: 76 Year
  Sex: Female

DRUGS (4)
  1. CO-DIOVAN [Suspect]
     Indication: HYPERTENSION
     Dosage: 1 DF (160/12.5 MG), DAILY
     Route: 048
     Dates: start: 201306, end: 201311
  2. SUPRADOL//KETOROLAC TROMETHAMINE [Concomitant]
     Indication: BACK PAIN
     Dosage: 1 UKN, DAILY
     Dates: start: 201306
  3. VONTROL [Concomitant]
     Indication: VERTIGO
     Dosage: UNK UKN, UNK
  4. PEPCID [Concomitant]
     Indication: GASTRITIS
     Dosage: UNK UKN, UNK

REACTIONS (1)
  - Dizziness [Recovered/Resolved]
